FAERS Safety Report 25631737 (Version 3)
Quarter: 2025Q4

REPORT INFORMATION
  Report Type: Report from Study
  Country: US (occurrence: None)
  Receive Date: 20250801
  Receipt Date: 20251230
  Transmission Date: 20260117
  Serious: Yes (Hospitalization, Other)
  Sender: UCB
  Company Number: US-UCBSA-2025005177

PATIENT
  Age: 29 Year
  Weight: 46.3 kg

DRUGS (27)
  1. FENFLURAMINE [Suspect]
     Active Substance: FENFLURAMINE
     Indication: Lennox-Gastaut syndrome
     Dosage: 0.3 MILLILITER, ONCE DAILY (QD)
     Route: 061
  2. FENFLURAMINE [Suspect]
     Active Substance: FENFLURAMINE
     Dosage: 0.6 ML MORNING AND 0.65 ML AT NIGHT
     Route: 061
  3. FENFLURAMINE [Suspect]
     Active Substance: FENFLURAMINE
     Dosage: 0.4 MILLILITER, 2X/DAY (BID)
     Route: 061
  4. FENFLURAMINE [Suspect]
     Active Substance: FENFLURAMINE
     Dosage: 0.6 MILLILITER, 2X/DAY (BID)
     Route: 061
  5. FENFLURAMINE [Suspect]
     Active Substance: FENFLURAMINE
     Dosage: 0.6 MILLILITER, 2X/DAY (BID)
     Route: 061
  6. FENFLURAMINE [Suspect]
     Active Substance: FENFLURAMINE
     Dosage: 0.6 MILLILITER, 2X/DAY (BID)
     Route: 061
  7. FENFLURAMINE [Suspect]
     Active Substance: FENFLURAMINE
     Dosage: 1.1 MILLILITER, 2X/DAY (BID)
  8. FENFLURAMINE [Suspect]
     Active Substance: FENFLURAMINE
     Dosage: 5.28 MILLIGRAM PER DAY
  9. EPIDIOLEX [Suspect]
     Active Substance: CANNABIDIOL
     Indication: Product used for unknown indication
     Dosage: 2 MILLILITER, 3X/DAY (TID)
     Route: 061
  10. EPIDIOLEX [Suspect]
     Active Substance: CANNABIDIOL
     Dosage: 1. 5 ML /1.5 ML AND 2 ML
     Route: 061
  11. DEPAKOTE [Suspect]
     Active Substance: DIVALPROEX SODIUM
     Indication: Epilepsy
     Dosage: 375 MILLIGRAM, 2X/DAY (BID)
  12. CANNABIDIOL [Concomitant]
     Active Substance: CANNABIDIOL
     Indication: Epilepsy
     Dosage: 200 MILLIGRAM, 3X/DAY (TID)
  13. LAMICTAL [Concomitant]
     Active Substance: LAMOTRIGINE
     Indication: Epilepsy
     Dosage: 150 MILLIGRAM, 3X/DAY (TID)
  14. Trieptal [Concomitant]
     Indication: Epilepsy
     Dosage: 750 MILLIGRAM, 3X/DAY (TID)
  15. VITAMIN C [Concomitant]
     Active Substance: ASCORBIC ACID
     Indication: Product used for unknown indication
     Dosage: 500 MILLIGRAM, DAILY
  16. OSCAL +D [Concomitant]
     Indication: Product used for unknown indication
     Dosage: 1 TABLET, ORAL, 2 TIMES DAILY
     Route: 061
  17. CALCIUM CITRATE [Concomitant]
     Active Substance: CALCIUM CITRATE
     Indication: Product used for unknown indication
     Dosage: 600 MILLIGRAM, 2X/DAY (BID)
     Route: 061
  18. VITAMIN D3 [Concomitant]
     Active Substance: CHOLECALCIFEROL
     Indication: Product used for unknown indication
     Dosage: 1000 UNITS, DAILY
     Route: 061
  19. KLONOPIN [Concomitant]
     Active Substance: CLONAZEPAM
     Indication: Product used for unknown indication
     Dosage: TAKE 1 TABLET EVERY MORNING AND 1 TABLET MIDDAY AND 1 TABLET IN THE EVENING ALSO, TAKE 2 TABLETS AS NEEDED FOR MORE THAN 3 SEIZURES IN AN 8 HOUR PERIOD
  20. PERIACTIN [Concomitant]
     Active Substance: CYPROHEPTADINE HYDROCHLORIDE
     Indication: Product used for unknown indication
     Dosage: 4 MILLIGRAM, 4X/DAY (QID)
  21. ATIVAN [Concomitant]
     Active Substance: LORAZEPAM
     Indication: Agitation
     Dosage: 1 TO 2 TABLETS EVERY 6 TO 8 HOURS PRN FOR AGITATION
  22. MIRALAX [Concomitant]
     Active Substance: POLYETHYLENE GLYCOL 3350
     Indication: Product used for unknown indication
     Dosage: 1 SCOOP DISSOLVED IN WATER ONCE A DAY
  23. REMERON [Concomitant]
     Active Substance: MIRTAZAPINE
     Indication: Product used for unknown indication
     Dosage: 1 AND 1/2 AT NIGHT
  24. PRILOSEC [Concomitant]
     Active Substance: OMEPRAZOLE MAGNESIUM
     Indication: Product used for unknown indication
     Dosage: 20 MILLIGRAM, DAILY
  25. GLYCOLAX [Concomitant]
     Active Substance: POLYETHYLENE GLYCOL 3350
     Indication: Product used for unknown indication
     Dosage: 17 MILLIGRAM, ONCE DAILY (QD)
  26. SIMETHICONE (DIMETHICONE) [Concomitant]
     Active Substance: DIMETHICONE
     Indication: Product used for unknown indication
     Dosage: 80 MG, ORAL, 3 TIMES DAILY WITH MEALS
  27. NAYZILAM [Concomitant]
     Active Substance: MIDAZOLAM
     Indication: Seizure
     Dosage: 1 SPRAY (5 MGTOTAL)

REACTIONS (13)
  - Hospitalisation [Recovered/Resolved]
  - Seizure cluster [Not Recovered/Not Resolved]
  - Myoclonic epilepsy [Recovered/Resolved]
  - Crying [Not Recovered/Not Resolved]
  - Decreased appetite [Not Recovered/Not Resolved]
  - Dilatation atrial [Recovered/Resolved]
  - Ejection fraction decreased [Unknown]
  - Cyanosis [Unknown]
  - Somnolence [Unknown]
  - Balance disorder [Recovering/Resolving]
  - Fatigue [Unknown]
  - Off label use [Unknown]
  - Product use issue [Unknown]
